FAERS Safety Report 7078697-X (Version None)
Quarter: 2010Q4

REPORT INFORMATION
  Report Type: 
  Country: None (occurrence: None)
  Receive Date: 20101101
  Receipt Date: 20101101
  Transmission Date: 20110411
  Serious: Yes (Hospitalization)
  Sender: FDA-Public Use
  Company Number: None

PATIENT
  Sex: Male
  Weight: 99.7913 kg

DRUGS (1)
  1. PACLITAXEL [Suspect]
     Indication: BLADDER TRANSITIONAL CELL CARCINOMA
     Dosage: 70 MG/M2 IV WEEKLY
     Route: 042
     Dates: start: 20080929

REACTIONS (4)
  - DIARRHOEA [None]
  - PYREXIA [None]
  - URETHRAL DISORDER [None]
  - URINARY RETENTION [None]
